FAERS Safety Report 4280124-2 (Version None)
Quarter: 2004Q1

REPORT INFORMATION
  Report Type: 
  Country: None (occurrence: None)
  Receive Date: 20040126
  Receipt Date: 20040121
  Transmission Date: 20041129
  Serious: Yes (Other)
  Sender: FDA-Public Use
  Company Number: 2003-10-3383

PATIENT
  Age: 47 Year
  Sex: Female
  Weight: 51.7101 kg

DRUGS (9)
  1. PEG-INTRON [Suspect]
     Indication: HEPATITIS C
     Dosage: QWK SUBCUTANEOUS
     Route: 058
     Dates: start: 20030613
  2. REBETOL [Suspect]
     Indication: HEPATITIS C
     Dosage: 1000 MG QD ORAL
     Route: 048
     Dates: start: 20030613
  3. AMBIEN [Concomitant]
  4. XANAX [Concomitant]
  5. BUSPAR [Concomitant]
  6. SEROQUEL [Concomitant]
  7. ALBUTEROL [Concomitant]
  8. ATROVENT [Concomitant]
  9. FLOVENT [Concomitant]

REACTIONS (4)
  - CHEST PAIN [None]
  - CHRONIC OBSTRUCTIVE AIRWAYS DISEASE EXACERBATED [None]
  - GASTRITIS EROSIVE [None]
  - HAEMOPTYSIS [None]
